FAERS Safety Report 5473722-1 (Version None)
Quarter: 2007Q4

REPORT INFORMATION
  Report Type: 
  Country: None (occurrence: None)
  Receive Date: 20071001
  Receipt Date: 20070917
  Transmission Date: 20080405
  Serious: Yes (Hospitalization)
  Sender: FDA-Public Use
  Company Number: US-PURDUE-USA_2007_0029290

PATIENT
  Age: 68 Year
  Sex: Male
  Weight: 68 kg

DRUGS (15)
  1. OXYCONTIN [Suspect]
     Indication: DRUG USE FOR UNKNOWN INDICATION
     Dosage: UNK, UNK
     Route: 048
     Dates: start: 20060221
  2. AG-013, 736 [Suspect]
     Indication: PANCREATIC CARCINOMA
     Dosage: 10 MG, DAILY
     Route: 048
     Dates: start: 20060227, end: 20060405
  3. LACTULOSE [Concomitant]
     Dosage: UNK, UNK
     Route: 048
     Dates: start: 20060221
  4. CARVEDILOL [Concomitant]
     Indication: CARDIAC FAILURE CONGESTIVE
     Dosage: UNK, UNK
     Route: 048
     Dates: start: 20030801
  5. LORAZEPAM [Suspect]
     Indication: ANXIETY
     Dosage: UNK, UNK
     Route: 048
     Dates: start: 20060324
  6. DIVALPROEX SODIUM [Concomitant]
     Indication: DRUG USE FOR UNKNOWN INDICATION
     Dosage: UNK, UNK
     Route: 048
     Dates: start: 20030801
  7. ASPIRIN [Concomitant]
     Indication: DRUG USE FOR UNKNOWN INDICATION
     Dosage: UNK, UNK
     Route: 048
     Dates: start: 20030801
  8. VITAMIN CAP [Concomitant]
     Indication: DRUG USE FOR UNKNOWN INDICATION
     Dosage: UNK, UNK
     Route: 048
     Dates: start: 20050901
  9. VITAMIN B [Concomitant]
     Indication: DRUG USE FOR UNKNOWN INDICATION
     Dosage: UNK, UNK
     Route: 048
     Dates: start: 20050901
  10. TAMSULOSIN HCL [Concomitant]
     Indication: BENIGN PROSTATIC HYPERPLASIA
     Dosage: UNK, UNK
     Route: 048
     Dates: start: 20030801
  11. SIMVASTATIN [Concomitant]
     Indication: BLOOD CHOLESTEROL INCREASED
     Dosage: UNK, UNK
     Route: 048
     Dates: start: 20030801
  12. NEXIUM [Concomitant]
     Indication: DYSPEPSIA
     Dosage: UNK, UNK
     Route: 048
     Dates: start: 20060221
  13. OXYCODONE HCL [Concomitant]
     Indication: DRUG USE FOR UNKNOWN INDICATION
     Dosage: UNK, UNK
     Route: 048
     Dates: start: 20051201
  14. LEVAQUIN [Concomitant]
     Indication: BRONCHITIS
     Dosage: UNK, UNK
     Route: 048
     Dates: start: 20060313
  15. ZOLOFT [Concomitant]
     Indication: DEPRESSION
     Dosage: UNK, UNK
     Route: 048
     Dates: start: 20060324

REACTIONS (13)
  - ANXIETY [None]
  - BRADYCARDIA [None]
  - DRUG INTERACTION [None]
  - DYSPEPSIA [None]
  - DYSPNOEA [None]
  - HALLUCINATION [None]
  - HEART RATE IRREGULAR [None]
  - HYPOTENSION [None]
  - MENTAL STATUS CHANGES [None]
  - PNEUMONIA [None]
  - PSYCHOTIC DISORDER [None]
  - SOMNOLENCE [None]
  - SPEECH DISORDER [None]
